FAERS Safety Report 9584477 (Version 1)
Quarter: 2013Q4

REPORT INFORMATION
  Report Type: Spontaneous
  Country: US (occurrence: US)
  Receive Date: 20131002
  Receipt Date: 20131002
  Transmission Date: 20140711
  Serious: No
  Sender: FDA-Public Use
  Company Number: US-AMGEN-USASP2013053302

PATIENT
  Age: 44 Year
  Sex: Female
  Weight: 68.02 kg

DRUGS (7)
  1. ENBREL [Suspect]
     Indication: PRODUCT USED FOR UNKNOWN INDICATION
     Dosage: 50 MG, QWK
     Route: 058
     Dates: start: 20130708
  2. FISH OIL [Concomitant]
     Dosage: UNK
  3. LIPITOR [Concomitant]
     Dosage: 10 MG, UNK
  4. NEURONTIN [Concomitant]
     Dosage: 100 MG, UNK
  5. FOLIC ACID [Concomitant]
     Dosage: UNK
  6. LEXAPRO [Concomitant]
     Dosage: 5 MG, UNK
  7. AMITIZA [Concomitant]
     Dosage: 8 MUG, UNK

REACTIONS (1)
  - Injection site urticaria [Unknown]
